FAERS Safety Report 8487054-0 (Version None)
Quarter: 2012Q3

REPORT INFORMATION
  Report Type: 
  Country: None (occurrence: None)
  Receive Date: 20120704
  Receipt Date: 20120628
  Transmission Date: 20120928
  Serious: Yes (Other)
  Sender: FDA-Public Use
  Company Number: PHHY2012BR056170

PATIENT
  Age: 24 Year
  Sex: Male
  Weight: 74 kg

DRUGS (2)
  1. TRILEPTAL [Suspect]
     Indication: BIPOLAR DISORDER
     Dosage: 1 DF, TID
  2. ANAFRANIL [Suspect]
     Indication: ANXIETY
     Dosage: 3 DF, QD

REACTIONS (1)
  - ATTENTION DEFICIT/HYPERACTIVITY DISORDER [None]
